FAERS Safety Report 5129360-3 (Version None)
Quarter: 2006Q4

REPORT INFORMATION
  Report Type: 
  Country: None (occurrence: None)
  Receive Date: 20061018
  Receipt Date: 20060106
  Transmission Date: 20070319
  Serious: Yes (Death, Other)
  Sender: FDA-Public Use
  Company Number: PHBS2006US00751

PATIENT
  Age: 51 Year

DRUGS (2)
  1. IMATINIB [Suspect]
     Indication: CHRONIC MYELOID LEUKAEMIA
     Dosage: 400 MG/DAY
     Route: 065
     Dates: start: 20010101
  2. IMATINIB [Suspect]
     Dosage: 600 MG/DAY
     Route: 065

REACTIONS (5)
  - ACUTE MYELOID LEUKAEMIA [None]
  - BLAST CELL PROLIFERATION [None]
  - CHROMOSOME ANALYSIS ABNORMAL [None]
  - MYELODYSPLASTIC SYNDROME [None]
  - PANCYTOPENIA [None]
